FAERS Safety Report 9617341 (Version 7)
Quarter: 2013Q4

REPORT INFORMATION
  Report Type: Report from Study
  Country: HU (occurrence: HU)
  Receive Date: 20131011
  Receipt Date: 20131204
  Transmission Date: 20140711
  Serious: Yes (Death, Hospitalization)
  Sender: FDA-Public Use
  Company Number: HU-B.I. PHARMACEUTICALS,INC./RIDGEFIELD-2013-BI-15041BI

PATIENT
  Age: 63 Year
  Sex: Male
  Weight: 66 kg

DRUGS (5)
  1. BIBW 2992 [Suspect]
     Indication: SQUAMOUS CELL CARCINOMA OF LUNG
     Dosage: 40 MG
     Route: 048
     Dates: start: 20130522, end: 20130619
  2. AMBROXOL [Concomitant]
     Indication: BRONCHITIS
     Dosage: 90 MG
     Dates: start: 20120402
  3. RETAFYLLIN [Concomitant]
     Indication: BRONCHITIS
     Dosage: 400 MG
     Dates: start: 20120402
  4. BUVENTOL EASYHALER [Concomitant]
     Indication: BRONCHITIS
     Dosage: 800 MG
     Dates: start: 20120402
  5. CODEIN+N [Concomitant]
     Indication: BRONCHITIS
     Dosage: 40 MG
     Dates: start: 20120402

REACTIONS (7)
  - Respiratory failure [Fatal]
  - Abdominal pain [Recovered/Resolved]
  - Muscle spasms [Recovered/Resolved]
  - Dyspnoea [Unknown]
  - Muscular weakness [Unknown]
  - Back pain [Unknown]
  - Tachycardia [Unknown]
